FAERS Safety Report 16490038 (Version 1)
Quarter: 2019Q2

REPORT INFORMATION
  Report Type: Spontaneous
  Country: ES (occurrence: ES)
  Receive Date: 20190628
  Receipt Date: 20190628
  Transmission Date: 20190711
  Serious: Yes (Life-Threatening, Hospitalization)
  Sender: FDA-Public Use
  Company Number: ES-SUN PHARMACEUTICAL INDUSTRIES LTD-2019RR-211881

PATIENT
  Age: 54 Year
  Sex: Male
  Weight: 50 kg

DRUGS (6)
  1. GEMFIBROZILO 900 MG 30 COMPRIMIDOS [Concomitant]
     Indication: HYPERTRIGLYCERIDAEMIA
     Dosage: 900 MILLIGRAM, DAILY
     Route: 048
     Dates: start: 20170901
  2. NEXIUM MUPS 40 MG COMPRIMIDOS GASTRORRESISTENTES, 28 COMPRIMIDOS [Concomitant]
     Indication: DYSPEPSIA
     Dosage: 40 MILLIGRAM, DAILY
     Route: 048
     Dates: start: 20190522
  3. ENALAPRIL 10 MG 56 COMPRIMIDOS [Concomitant]
     Indication: HYPERTENSION
     Dosage: 10 MILLIGRAM, DAILY
     Route: 048
     Dates: start: 20181023
  4. ZOLPIDEM 10 MG 30 COMPRIMIDOS [Concomitant]
     Indication: INSOMNIA
     Dosage: 10 MILLIGRAM, DAILY
     Route: 048
     Dates: start: 20170925
  5. RANITIDINE. [Suspect]
     Active Substance: RANITIDINE
     Indication: DYSPEPSIA
     Dosage: 300 MILLIGRAM, DAILY
     Route: 048
     Dates: start: 20180419, end: 20190529
  6. TRAZODONA (3160A) [Concomitant]
     Active Substance: TRAZODONE HYDROCHLORIDE
     Indication: INSOMNIA
     Dosage: 100 MILLIGRAM, DAILY
     Route: 048
     Dates: start: 20170925

REACTIONS (1)
  - Syncope [Recovered/Resolved]

NARRATIVE: CASE EVENT DATE: 20190529
